FAERS Safety Report 18516887 (Version 1)
Quarter: 2020Q4

REPORT INFORMATION
  Report Type: Spontaneous
  Country: US (occurrence: US)
  Receive Date: 20201118
  Receipt Date: 20201118
  Transmission Date: 20210114
  Serious: No
  Sender: FDA-Public Use
  Company Number: None

PATIENT
  Age: 79 Year
  Sex: Male
  Weight: 93.6 kg

DRUGS (4)
  1. REVLIMID 5 MG CAPSULE [Concomitant]
  2. NINLARO [Suspect]
     Active Substance: IXAZOMIB CITRATE
     Indication: PLASMA CELL MYELOMA
     Dosage: ?          OTHER FREQUENCY:ONCE A WEEK;?
     Route: 048
     Dates: start: 20190327, end: 20201118
  3. ACYCLOVIR 400 MG TABLET [Concomitant]
     Active Substance: ACYCLOVIR
  4. DEXAMETHASONE 2 MG TABLET [Concomitant]

REACTIONS (3)
  - Fall [None]
  - Gait disturbance [None]
  - Joint injury [None]

NARRATIVE: CASE EVENT DATE: 20201118
